FAERS Safety Report 8350678-5 (Version None)
Quarter: 2012Q2

REPORT INFORMATION
  Report Type: 
  Country: None (occurrence: None)
  Receive Date: 20120510
  Receipt Date: 20120507
  Transmission Date: 20120825
  Serious: Yes (Other)
  Sender: FDA-Public Use
  Company Number: US-BAYER-2012-035530

PATIENT
  Age: 69 Year
  Sex: Female
  Weight: 64.4 kg

DRUGS (5)
  1. NOVOLOG [Concomitant]
     Dosage: 100 U/ML, UNK
  2. ALBUTEROL [Concomitant]
     Dosage: 90 ?G, UNK
  3. MAGNEVIST [Suspect]
     Indication: NUCLEAR MAGNETIC RESONANCE IMAGING BRAIN
     Dosage: 10 ML, ONCE
     Route: 042
     Dates: start: 20120228, end: 20120228
  4. FLOVENT [Concomitant]
     Dosage: 220 ?G, UNK
  5. NPH INSULIN [Concomitant]
     Dosage: 100 U/ML, UNK

REACTIONS (6)
  - THROAT IRRITATION [None]
  - RESPIRATORY DISORDER [None]
  - PRURITUS [None]
  - URTICARIA [None]
  - ANAPHYLACTIC REACTION [None]
  - TRACHEAL OEDEMA [None]
